FAERS Safety Report 24027635 (Version 1)
Quarter: 2024Q2

REPORT INFORMATION
  Report Type: Spontaneous
  Country: US (occurrence: US)
  Receive Date: 20240628
  Receipt Date: 20240628
  Transmission Date: 20240716
  Serious: No
  Sender: FDA-Public Use
  Company Number: US-002147023-NVSC2024US133983

PATIENT

DRUGS (1)
  1. TASIGNA [Suspect]
     Active Substance: NILOTINIB
     Indication: Chronic myeloid leukaemia
     Dosage: 300 MG, BID (2 X PER DAY)
     Route: 065

REACTIONS (5)
  - Pain [Unknown]
  - Movement disorder [Unknown]
  - Pleural effusion [Unknown]
  - Arthralgia [Unknown]
  - Pain in extremity [Unknown]
